FAERS Safety Report 7650911-9 (Version None)
Quarter: 2011Q3

REPORT INFORMATION
  Report Type: 
  Country: None (occurrence: None)
  Receive Date: 20110727
  Receipt Date: 20110715
  Transmission Date: 20111222
  Serious: Yes (Hospitalization)
  Sender: FDA-Public Use
  Company Number: TCI2011A03849

PATIENT
  Age: 79 Year
  Sex: Male

DRUGS (6)
  1. ACTOS [Suspect]
     Indication: DIABETES MELLITUS
     Dosage: 30 MG (30 MG,1 IN 1 D) PER ORAL
     Route: 048
     Dates: start: 20061026, end: 20110630
  2. AMARYL [Concomitant]
  3. CRESTOR [Concomitant]
  4. JANUVIA [Concomitant]
  5. UFT [Concomitant]
  6. SEIBULE (MIGLITOL) [Concomitant]

REACTIONS (2)
  - BLADDER CANCER [None]
  - URINARY BLADDER HAEMORRHAGE [None]
